FAERS Safety Report 14980714 (Version 3)
Quarter: 2018Q2

REPORT INFORMATION
  Report Type: Spontaneous
  Country: US (occurrence: US)
  Receive Date: 20180606
  Receipt Date: 20180628
  Transmission Date: 20180711
  Serious: Yes (Other)
  Sender: FDA-Public Use
  Company Number: US-ACORDA-ACO_150688_2018

PATIENT
  Age: 60 Year
  Sex: Male

DRUGS (11)
  1. DITROPAN [Concomitant]
     Active Substance: OXYBUTYNIN CHLORIDE
     Indication: NEUROGENIC BLADDER
     Dosage: 10 MG, QD
     Route: 048
  2. MULTIVITAMIN [Concomitant]
     Active Substance: VITAMINS
     Indication: PRODUCT USED FOR UNKNOWN INDICATION
     Dosage: 1 DF, QD
     Route: 048
  3. AMPYRA [Suspect]
     Active Substance: DALFAMPRIDINE
     Indication: MULTIPLE SCLEROSIS
     Dosage: 10 MG, BID
     Route: 048
     Dates: start: 20180307, end: 20180524
  4. OXYBUTYNIN CHLORIDE. [Suspect]
     Active Substance: OXYBUTYNIN CHLORIDE
     Indication: PRODUCT USED FOR UNKNOWN INDICATION
     Dosage: UNK
     Route: 065
  5. HYDROCHLOROTHIAZIDE AND LISINOPRIL [Concomitant]
     Active Substance: HYDROCHLOROTHIAZIDE\LISINOPRIL
     Indication: PRODUCT USED FOR UNKNOWN INDICATION
     Dosage: 20-12.5MG EVERY DAY
     Route: 048
  6. ATORVASTATIN [Concomitant]
     Active Substance: ATORVASTATIN
     Indication: PRODUCT USED FOR UNKNOWN INDICATION
     Dosage: 1 DF, QD
     Route: 048
  7. AUBAGIO [Concomitant]
     Active Substance: TERIFLUNOMIDE
     Indication: MULTIPLE SCLEROSIS
     Dosage: 14 MG, UNK
     Route: 048
     Dates: start: 20180126
  8. DETROL LA [Concomitant]
     Active Substance: TOLTERODINE TARTRATE
     Indication: PRODUCT USED FOR UNKNOWN INDICATION
     Dosage: 4 MG, QD
     Route: 048
     Dates: start: 20130415, end: 20180307
  9. AMPYRA [Suspect]
     Active Substance: DALFAMPRIDINE
     Indication: GAIT DISTURBANCE
  10. ASPIRIN. [Concomitant]
     Active Substance: ASPIRIN
     Indication: PRODUCT USED FOR UNKNOWN INDICATION
     Dosage: 81 MG, QD
     Route: 048
  11. BACLOFEN. [Concomitant]
     Active Substance: BACLOFEN
     Indication: PRODUCT USED FOR UNKNOWN INDICATION
     Dosage: 10 MG, QID, START WITH 1 QAM AND TAPER UP TO 4 TIMES PER DAY
     Route: 048
     Dates: start: 20170130, end: 20180307

REACTIONS (26)
  - Condition aggravated [Recovered/Resolved]
  - Drug ineffective [Unknown]
  - Snoring [Recovered/Resolved]
  - Tachycardia [Recovered/Resolved]
  - Tinnitus [Unknown]
  - Muscle spasticity [Unknown]
  - Postictal state [Recovered/Resolved]
  - Muscular weakness [Unknown]
  - Vitamin D deficiency [Unknown]
  - Seizure [Recovered/Resolved]
  - Dizziness [Unknown]
  - Anger [Unknown]
  - Mental status changes [Recovered/Resolved]
  - Somnolence [Unknown]
  - Restlessness [Recovered/Resolved]
  - Anosognosia [Unknown]
  - Aggression [Unknown]
  - Nocturia [Unknown]
  - Agitation [Recovered/Resolved]
  - Erythema [Unknown]
  - Dyspnoea [Unknown]
  - Urticaria [Unknown]
  - Poor quality sleep [Unknown]
  - Urinary tract infection [Recovered/Resolved]
  - Cystitis [Recovered/Resolved]
  - Multiple sclerosis [Unknown]

NARRATIVE: CASE EVENT DATE: 20180310
